FAERS Safety Report 8058733-4 (Version None)
Quarter: 2012Q1

REPORT INFORMATION
  Report Type: 
  Country: None (occurrence: None)
  Receive Date: 20120119
  Receipt Date: 20120119
  Transmission Date: 20120608
  Serious: Yes (Death, Life-Threatening, Hospitalization, Disabling, Other)
  Sender: FDA-Public Use
  Company Number: None

PATIENT
  Sex: Male
  Weight: 70.3075 kg

DRUGS (1)
  1. TRAMADOL HCL [Suspect]
     Dosage: 1 TABLET 3-TIMES A DAY
     Dates: start: 20101124, end: 20110805

REACTIONS (3)
  - HEART RATE INCREASED [None]
  - MALAISE [None]
  - MUSCLE TWITCHING [None]
